FAERS Safety Report 16358624 (Version 1)
Quarter: 2019Q2

REPORT INFORMATION
  Report Type: Spontaneous
  Country: ES (occurrence: ES)
  Receive Date: 20190527
  Receipt Date: 20190527
  Transmission Date: 20190711
  Serious: Yes (Other)
  Sender: FDA-Public Use
  Company Number: ES-ELI_LILLY_AND_COMPANY-ES201905006893

PATIENT
  Age: 69 Year
  Sex: Female

DRUGS (8)
  1. SIMVASTATINA [Concomitant]
     Active Substance: SIMVASTATIN
     Route: 048
     Dates: start: 20180619
  2. OMEPRAZOL [OMEPRAZOLE] [Concomitant]
     Active Substance: OMEPRAZOLE
     Route: 048
     Dates: start: 20140127
  3. DELTIUS [Concomitant]
     Active Substance: CHOLECALCIFEROL
     Route: 048
     Dates: start: 20180517
  4. VALSARTAN. [Concomitant]
     Active Substance: VALSARTAN
     Route: 048
     Dates: start: 20120224
  5. FUROSEMIDA [FUROSEMIDE] [Concomitant]
     Route: 048
     Dates: start: 20180517
  6. FORSTEO 250UG/ML [Suspect]
     Active Substance: TERIPARATIDE
     Indication: OSTEOPOROSIS
     Route: 058
     Dates: start: 20171221, end: 20180619
  7. PREGABALINA [Concomitant]
     Active Substance: PREGABALIN
     Route: 048
     Dates: start: 20180404
  8. ETORICOXIB. [Concomitant]
     Active Substance: ETORICOXIB
     Route: 048
     Dates: start: 20140127

REACTIONS (3)
  - Vomiting [Recovered/Resolved]
  - Oedema peripheral [Recovered/Resolved]
  - Erythema [Recovered/Resolved]

NARRATIVE: CASE EVENT DATE: 20180614
